FAERS Safety Report 16962693 (Version 1)
Quarter: 2019Q4

REPORT INFORMATION
  Report Type: Spontaneous
  Country: US (occurrence: US)
  Receive Date: 20191025
  Receipt Date: 20191025
  Transmission Date: 20200122
  Serious: Yes (Hospitalization)
  Sender: FDA-Public Use
  Company Number: None

PATIENT
  Age: 54 Year
  Sex: Female

DRUGS (12)
  1. CIPROFLOXACIN TAB 500 MG [Concomitant]
     Active Substance: CIPROFLOXACIN
  2. METHOTREXATE INJ 25 MG/ML [Concomitant]
  3. RASUVO INJ 20 MG [Concomitant]
  4. HUMIRA [Suspect]
     Active Substance: ADALIMUMAB
     Indication: RHEUMATOID ARTHRITIS
     Dosage: ?          OTHER FREQUENCY:EVERY OTHER WEEK;?
     Route: 058
     Dates: start: 20181203
  5. NORTRIPTYLIN CAP 25 MG [Concomitant]
  6. METRONIDAZOLE TAB 500 MG [Concomitant]
  7. TRIAM/HCTZ TAB 37.5-25 [Concomitant]
  8. OMEPRAZOLE CAP 40 MG [Concomitant]
  9. CLENPIQ SOL [Concomitant]
  10. PREDNISONE TAB 10 MG [Concomitant]
  11. FOLIC ACID TAB 1000 MCG [Concomitant]
  12. COMBIPATCH DIS 0.05/0.14 [Concomitant]

REACTIONS (1)
  - Diverticulitis [None]

NARRATIVE: CASE EVENT DATE: 20191008
